FAERS Safety Report 24524222 (Version 1)
Quarter: 2024Q4

REPORT INFORMATION
  Report Type: Spontaneous
  Country: US (occurrence: US)
  Receive Date: 20241018
  Receipt Date: 20241018
  Transmission Date: 20250114
  Serious: Yes (Other)
  Sender: SANOFI AVENTIS
  Company Number: US-SANOFI-02259763

PATIENT
  Age: 94 Year
  Sex: Male

DRUGS (2)
  1. MULTAQ [Suspect]
     Active Substance: DRONEDARONE
     Indication: Product used for unknown indication
     Dosage: 400MG BID
  2. MULTAQ [Suspect]
     Active Substance: DRONEDARONE
     Dosage: 1 DF

REACTIONS (7)
  - Atrial fibrillation [Unknown]
  - Arrhythmia [Unknown]
  - Bradycardia [Unknown]
  - Weight decreased [Unknown]
  - Fatigue [Unknown]
  - Blood pressure decreased [Unknown]
  - Incorrect dose administered [Unknown]
